FAERS Safety Report 12312234 (Version 1)
Quarter: 2016Q2

REPORT INFORMATION
  Report Type: Spontaneous
  Country: GB (occurrence: GB)
  Receive Date: 20160428
  Receipt Date: 20160428
  Transmission Date: 20160815
  Serious: Yes (Disabling, Other)
  Sender: FDA-Public Use
  Company Number: GB-AUROBINDO-AUR-APL-2016-04830

PATIENT
  Sex: Female

DRUGS (1)
  1. METRONIDAZOLE 400MG [Suspect]
     Active Substance: METRONIDAZOLE
     Indication: ANTIBIOTIC THERAPY
     Dosage: 400 MG, 3 TIMES A DAY, PRESCRIBED FOR 5 DAYS, TOOK 10 OF 15
     Route: 065
     Dates: start: 20160330, end: 20160403

REACTIONS (4)
  - Dizziness [Recovering/Resolving]
  - Gait disturbance [Recovering/Resolving]
  - Abdominal distension [Recovering/Resolving]
  - Feeling abnormal [Recovering/Resolving]
